FAERS Safety Report 19128091 (Version 1)
Quarter: 2021Q2

REPORT INFORMATION
  Report Type: Spontaneous
  Country: US (occurrence: US)
  Receive Date: 20210413
  Receipt Date: 20210413
  Transmission Date: 20210717
  Serious: No
  Sender: FDA-Public Use
  Company Number: US-ALLERGAN-2030967US

PATIENT
  Sex: Female

DRUGS (1)
  1. LATISSE [Suspect]
     Active Substance: BIMATOPROST
     Indication: PRODUCT USED FOR UNKNOWN INDICATION
     Dosage: 3 MM SIZE, EVERY NIGHT
     Dates: start: 20200804, end: 20200814

REACTIONS (1)
  - Madarosis [Recovered/Resolved]

NARRATIVE: CASE EVENT DATE: 20200812
